FAERS Safety Report 12201908 (Version 1)
Quarter: 2016Q1

REPORT INFORMATION
  Report Type: Spontaneous
  Country: FR (occurrence: FR)
  Receive Date: 20160322
  Receipt Date: 20160322
  Transmission Date: 20160526
  Serious: Yes (Death)
  Sender: FDA-Public Use
  Company Number: FR-SA-2016SA057040

PATIENT
  Age: 89 Year
  Sex: Female

DRUGS (9)
  1. LASILIX SPECIAL [Suspect]
     Active Substance: FUROSEMIDE
     Indication: OEDEMA PERIPHERAL
     Dosage: FORM: SCORED TABLET
     Route: 048
     Dates: end: 20160211
  2. LASILIX SPECIAL [Suspect]
     Active Substance: FUROSEMIDE
     Indication: OEDEMA PERIPHERAL
     Route: 048
     Dates: start: 20160226, end: 20160228
  3. ZYVOXID [Concomitant]
     Active Substance: LINEZOLID
  4. INEXIUM [Concomitant]
     Active Substance: ESOMEPRAZOLE
  5. LASILIX SPECIAL [Suspect]
     Active Substance: FUROSEMIDE
     Indication: OEDEMA PERIPHERAL
     Route: 048
     Dates: start: 20160212, end: 20160225
  6. COUMADINE [Concomitant]
     Active Substance: WARFARIN SODIUM
  7. BISOPROLOL FUMARATE. [Concomitant]
     Active Substance: BISOPROLOL FUMARATE
  8. PIPERACILLIN [Concomitant]
     Active Substance: PIPERACILLIN
  9. SYMBICORT [Concomitant]
     Active Substance: BUDESONIDE\FORMOTEROL FUMARATE DIHYDRATE
     Dosage: POWDER FOR INHALATION

REACTIONS (1)
  - Acute kidney injury [Fatal]

NARRATIVE: CASE EVENT DATE: 20160224
